FAERS Safety Report 7801669-1 (Version None)
Quarter: 2011Q4

REPORT INFORMATION
  Report Type: 
  Country: None (occurrence: None)
  Receive Date: 20111007
  Receipt Date: 20110930
  Transmission Date: 20120403
  Serious: Yes (Other)
  Sender: FDA-Public Use
  Company Number: GB-B.I. PHARMACEUTICALS,INC./RIDGEFIELD-2011-UK-01045UK

PATIENT
  Age: 74 Year
  Sex: Male
  Weight: 72 kg

DRUGS (12)
  1. ALLOPURINOL [Concomitant]
  2. BISOPROLOL [Concomitant]
  3. PERINDOPRIL ERBUMINE [Concomitant]
  4. PRAVASTATIN [Concomitant]
  5. SENNA [Concomitant]
  6. LANSOPRAZOLE [Concomitant]
  7. ALBUTEROL [Concomitant]
  8. WARFARIN SODIUM [Concomitant]
  9. SPIRIVA [Suspect]
     Indication: CHRONIC OBSTRUCTIVE PULMONARY DISEASE
     Route: 055
     Dates: end: 20110909
  10. DOTHIEPIN HYDROCHLORIDE [Concomitant]
  11. MONOSORB XL [Concomitant]
  12. ACETAMINOPHEN [Concomitant]

REACTIONS (2)
  - DYSPNOEA [None]
  - INTERNATIONAL NORMALISED RATIO INCREASED [None]
